FAERS Safety Report 5934203-1 (Version None)
Quarter: 2008Q4

REPORT INFORMATION
  Report Type: 
  Country: None (occurrence: None)
  Receive Date: 20081028
  Receipt Date: 20081028
  Transmission Date: 20090506
  Serious: No
  Sender: FDA-Public Use
  Company Number: None

PATIENT
  Age: 66 Year
  Sex: Male
  Weight: 75 kg

DRUGS (2)
  1. CANCIDAS [Suspect]
     Indication: FUNGAL INFECTION
     Dosage: 70 MG ONCE IV
     Route: 042
     Dates: start: 20081025, end: 20081026
  2. CYCLOSPORINE [Suspect]

REACTIONS (4)
  - ALANINE AMINOTRANSFERASE INCREASED [None]
  - ASPARTATE AMINOTRANSFERASE INCREASED [None]
  - BLOOD BILIRUBIN INCREASED [None]
  - DRUG INTERACTION [None]
